FAERS Safety Report 8584961-5 (Version None)
Quarter: 2012Q3

REPORT INFORMATION
  Report Type: 
  Country: None (occurrence: None)
  Receive Date: 20120810
  Receipt Date: 20120726
  Transmission Date: 20120928
  Serious: No
  Sender: FDA-Public Use
  Company Number: US-BAYER-2012-076088

PATIENT
  Age: 85 Year
  Sex: Female

DRUGS (2)
  1. ALEVE (CAPLET) [Suspect]
     Indication: ARTHRITIS
     Dosage: 1 DF, QD
     Route: 048
     Dates: start: 20120712, end: 20120725
  2. ANTIHYPERTENSIVES [Concomitant]

REACTIONS (2)
  - CONSTIPATION [None]
  - ABNORMAL FAECES [None]
